FAERS Safety Report 5087986-X (Version None)
Quarter: 2006Q3

REPORT INFORMATION
  Report Type: 
  Country: None (occurrence: None)
  Receive Date: 20060821
  Receipt Date: 20060804
  Transmission Date: 20061208
  Serious: Yes (Hospitalization, Other)
  Sender: FDA-Public Use
  Company Number: 2006AL002132

PATIENT
  Age: 71 Year
  Sex: Female

DRUGS (1)
  1. ENULOSE [Suspect]
     Indication: HEPATIC CIRRHOSIS

REACTIONS (1)
  - AMMONIA INCREASED [None]
